FAERS Safety Report 8245267-7 (Version None)
Quarter: 2012Q1

REPORT INFORMATION
  Report Type: 
  Country: None (occurrence: None)
  Receive Date: 20120329
  Receipt Date: 20120314
  Transmission Date: 20120608
  Serious: Yes (Hospitalization)
  Sender: FDA-Public Use
  Company Number: AU-ROCHE-802100

PATIENT
  Age: 60 Year
  Sex: Female
  Weight: 73.8 kg

DRUGS (4)
  1. VEMURAFENIB [Suspect]
     Indication: METASTATIC MALIGNANT MELANOMA
     Dosage: LAST DOSE PRIOR TO SAE : 30 AUGUST 2011
     Route: 048
     Dates: start: 20110729, end: 20110830
  2. ATIVAN [Concomitant]
     Dates: start: 20110501
  3. VEMURAFENIB [Suspect]
     Route: 048
     Dates: start: 20110914, end: 20111002
  4. NORVASC [Concomitant]
     Dates: start: 20090701

REACTIONS (1)
  - HEPATITIS [None]
